FAERS Safety Report 12098915 (Version 1)
Quarter: 2016Q1

REPORT INFORMATION
  Report Type: Spontaneous
  Country: US (occurrence: US)
  Receive Date: 20160222
  Receipt Date: 20160222
  Transmission Date: 20160526
  Serious: No
  Sender: FDA-Public Use
  Company Number: US-TEVA-585774USA

PATIENT
  Sex: Female

DRUGS (1)
  1. ALENDRONIC ACID [Suspect]
     Active Substance: ALENDRONIC ACID
     Dosage: EVERY WEEK
     Route: 065

REACTIONS (3)
  - Oesophageal oedema [Unknown]
  - Dyspnoea [Unknown]
  - Dysphagia [Unknown]
